FAERS Safety Report 8349015-1 (Version None)
Quarter: 2012Q2

REPORT INFORMATION
  Report Type: 
  Country: None (occurrence: None)
  Receive Date: 20120510
  Receipt Date: 20120430
  Transmission Date: 20120825
  Serious: Yes (Other)
  Sender: FDA-Public Use
  Company Number: CH-JNJFOC-20120409489

PATIENT
  Age: 28 Year
  Sex: Female
  Weight: 77 kg

DRUGS (5)
  1. REMICADE [Suspect]
     Route: 042
     Dates: start: 20120306, end: 20120306
  2. REMICADE [Suspect]
     Indication: ANKYLOSING SPONDYLITIS
     Route: 042
  3. REMICADE [Suspect]
     Route: 042
     Dates: start: 20120306, end: 20120306
  4. REMICADE [Suspect]
     Indication: SPONDYLOARTHROPATHY
     Route: 042
  5. CLEMASTINE FUMARATE [Concomitant]
     Indication: PREMEDICATION
     Route: 065

REACTIONS (5)
  - PAIN IN EXTREMITY [None]
  - CHILLS [None]
  - PERIPHERAL COLDNESS [None]
  - CYANOSIS [None]
  - INFUSION RELATED REACTION [None]
